FAERS Safety Report 14754875 (Version 2)
Quarter: 2018Q2

REPORT INFORMATION
  Report Type: Spontaneous
  Country: BR (occurrence: BR)
  Receive Date: 20180413
  Receipt Date: 20180508
  Transmission Date: 20180711
  Serious: Yes (Hospitalization)
  Sender: FDA-Public Use
  Company Number: BR-ABBVIE-18P-020-2318696-00

PATIENT
  Sex: Female
  Weight: 77 kg

DRUGS (7)
  1. TORLOS [Concomitant]
     Indication: HYPERTENSION
     Route: 048
     Dates: start: 2017
  2. RIVOTRIL ^0.5^ [Concomitant]
     Indication: RELAXATION THERAPY
  3. SYNTHROID [Suspect]
     Active Substance: LEVOTHYROXINE SODIUM
     Indication: HORMONE LEVEL ABNORMAL
     Route: 048
  4. SYNTHROID [Suspect]
     Active Substance: LEVOTHYROXINE SODIUM
     Indication: PRODUCT USED FOR UNKNOWN INDICATION
     Dosage: IN FASTING
     Route: 048
     Dates: start: 20180301
  5. RIVOTRIL ^0.5^ [Concomitant]
     Indication: SLEEP DISORDER THERAPY
     Dosage: AT NIGHT
     Route: 048
  6. SYNTHROID [Suspect]
     Active Substance: LEVOTHYROXINE SODIUM
     Indication: THYROID DISORDER
     Dosage: SHE USED TO TAKE SYNTHROID 25 MCG AFTER THAT IT WAS REPLACED WITH THE 50 MCG ONCE
     Route: 048
  7. HYDROCHLOROTHIAZIDE. [Concomitant]
     Active Substance: HYDROCHLOROTHIAZIDE
     Indication: BLOOD PRESSURE MANAGEMENT
     Dosage: ^1^ PER DAY
     Route: 048

REACTIONS (6)
  - Thyroid hormones increased [Unknown]
  - Unevaluable event [Not Recovered/Not Resolved]
  - Arrhythmia [Unknown]
  - Drug ineffective [Unknown]
  - Fatigue [Unknown]
  - Product quality issue [Unknown]
